FAERS Safety Report 6534600-X (Version None)
Quarter: 2010Q1

REPORT INFORMATION
  Report Type: 
  Country: None (occurrence: None)
  Receive Date: 20100112
  Receipt Date: 20100111
  Transmission Date: 20100710
  Serious: Yes (Other)
  Sender: FDA-Public Use
  Company Number: A0838754A

PATIENT
  Age: 35 Year
  Sex: Female

DRUGS (3)
  1. LAMOTRIGINE [Suspect]
     Indication: BIPOLAR DISORDER
     Dosage: 250MG PER DAY
     Route: 048
     Dates: start: 20090101, end: 20090101
  2. OXCARBAZEPINE [Concomitant]
  3. ATIVAN [Concomitant]

REACTIONS (3)
  - DRUG INEFFECTIVE [None]
  - PSYCHOTIC DISORDER [None]
  - SUICIDAL IDEATION [None]
